FAERS Safety Report 5492743-6 (Version None)
Quarter: 2007Q4

REPORT INFORMATION
  Report Type: 
  Country: None (occurrence: None)
  Receive Date: 20071023
  Receipt Date: 20071008
  Transmission Date: 20080405
  Serious: Yes (Other)
  Sender: FDA-Public Use
  Company Number: PHBS2007ZA16722

PATIENT
  Age: 45 Year
  Sex: Female

DRUGS (2)
  1. TEGRETOL [Suspect]
     Indication: EPILEPSY
     Dosage: UNK, UNK
     Route: 065
  2. TRILEPTAL [Suspect]
     Indication: EPILEPSY
     Dosage: UNK, UNK
     Route: 065

REACTIONS (4)
  - CONVULSION [None]
  - DRUG EXPOSURE DURING PREGNANCY [None]
  - OSTEOPENIA [None]
  - SPINAL FRACTURE [None]
